FAERS Safety Report 8909761 (Version 2)
Quarter: 2013Q3

REPORT INFORMATION
  Report Type: Spontaneous
  Country: US (occurrence: US)
  Receive Date: 20121115
  Receipt Date: 20130802
  Transmission Date: 20140515
  Serious: Yes (Hospitalization, Disabling, Other)
  Sender: FDA-Public Use
  Company Number: US-PFIZER INC-2012285149

PATIENT
  Age: 79 Year
  Sex: Female
  Weight: 85.71 kg

DRUGS (6)
  1. NEURONTIN [Suspect]
     Indication: NERVE INJURY
     Dosage: 300 MG, 3X/DAY
     Route: 048
     Dates: start: 2010
  2. NEURONTIN [Suspect]
     Indication: RHEUMATOID ARTHRITIS
     Dosage: 300 MG, 3X/DAY
     Route: 048
  3. NEURONTIN [Suspect]
     Indication: THROMBOSIS
  4. NEURONTIN [Suspect]
     Indication: NEURALGIA
  5. METOPROLOL [Concomitant]
     Indication: HYPERTENSION
     Dosage: 25 MG, 3X/DAY
  6. TYLENOL [Concomitant]
     Indication: PAIN IN EXTREMITY
     Dosage: 500 MG, 2X/DAY

REACTIONS (6)
  - Off label use [Unknown]
  - Nerve injury [Unknown]
  - Lung neoplasm malignant [Unknown]
  - Abasia [Unknown]
  - Pain [Unknown]
  - Drug ineffective for unapproved indication [Unknown]
